FAERS Safety Report 15088712 (Version 1)
Quarter: 2018Q2

REPORT INFORMATION
  Report Type: Spontaneous
  Country: US (occurrence: US)
  Receive Date: 20180608
  Receipt Date: 20180608
  Transmission Date: 20180711
  Serious: No
  Sender: FDA-Public Use
  Company Number: None

PATIENT
  Sex: Male

DRUGS (2)
  1. METHOTREXATE UNKNOWN GENERIC [Suspect]
     Active Substance: METHOTREXATE
  2. SULFASALAZINE UNKNOWN GENERIC [Suspect]
     Active Substance: SULFASALAZINE
     Indication: PSORIASIS

REACTIONS (2)
  - Rash macular [None]
  - Macule [None]
